FAERS Safety Report 9026833 (Version 1)
Quarter: 2013Q1

REPORT INFORMATION
  Report Type: Spontaneous
  Country: CN (occurrence: None)
  Receive Date: 20130109
  Receipt Date: 20130109
  Transmission Date: 20140127
  Serious: Yes (Hospitalization, Other)
  Sender: FDA-Public Use
  Company Number: VAL_01250_2013

PATIENT
  Age: 60 Year
  Sex: Male
  Weight: 68 kg

DRUGS (4)
  1. BENAZEPRIL HYDROCHLORIDE (BENAZEPRIL HYDROCHLORIDE) [Suspect]
     Indication: HYPERTENSION
  2. BENAZEPRIL HYDROCHLORIDE (BENAZEPRIL HYDROCHLORIDE) [Suspect]
     Indication: HYPERLIPIDAEMIA
  3. LESCOL (LESCOL (FLUVASTATIN SODIUM) [Suspect]
     Indication: HYPERTENSION
     Route: 048
     Dates: start: 20090704, end: 20090714
  4. LESCOL (LESCOL (FLUVASTATIN SODIUM) [Suspect]
     Indication: HYPERLIPIDAEMIA
     Route: 048
     Dates: start: 20090704, end: 20090714

REACTIONS (7)
  - Coronary artery disease [None]
  - Blood pressure diastolic increased [None]
  - Rhabdomyolysis [None]
  - Asthenia [None]
  - Alanine aminotransferase increased [None]
  - Myalgia [None]
  - Dizziness [None]
